FAERS Safety Report 6056088-8 (Version None)
Quarter: 2009Q1

REPORT INFORMATION
  Report Type: 
  Country: None (occurrence: None)
  Receive Date: 20090126
  Receipt Date: 20090114
  Transmission Date: 20090719
  Serious: Yes (Hospitalization)
  Sender: FDA-Public Use
  Company Number: 2008SP025025

PATIENT
  Age: 37 Year
  Sex: Male

DRUGS (7)
  1. TEMODAL [Suspect]
     Indication: GLIOBLASTOMA
     Dosage: 75 MG/M2;QD;PO
     Route: 048
     Dates: start: 20081204, end: 20081209
  2. TEMODAL [Suspect]
     Indication: GLIOBLASTOMA
     Dosage: 75 MG/M2;QD;PO
     Route: 048
     Dates: start: 20090112
  3. DEXAMETHASONE TAB [Suspect]
     Indication: BRAIN OEDEMA
     Dosage: 12 MG;QD;PO : 6 MG;QD : 2 MG;QD
     Dates: start: 20081112
  4. DEXAMETHASONE TAB [Suspect]
     Indication: BRAIN OEDEMA
     Dosage: 12 MG;QD;PO : 6 MG;QD : 2 MG;QD
     Dates: start: 20081212
  5. VALPROATE SODIUM [Concomitant]
  6. OMEPRAZOLE [Concomitant]
  7. METOCLOPRAMIDE [Concomitant]

REACTIONS (2)
  - BONE INFARCTION [None]
  - MYALGIA [None]
